FAERS Safety Report 17786396 (Version 1)
Quarter: 2020Q2

REPORT INFORMATION
  Report Type: Spontaneous
  Country: MY (occurrence: MY)
  Receive Date: 20200514
  Receipt Date: 20200514
  Transmission Date: 20200714
  Serious: Yes (Other)
  Sender: FDA-Public Use
  Company Number: NVSC2020MY128799

PATIENT
  Age: 32 Year
  Sex: Female

DRUGS (3)
  1. ARTESUNATE [Suspect]
     Active Substance: ARTESUNATE
     Indication: PLASMODIUM KNOWLESI INFECTION
     Dosage: UNK
     Route: 042
  2. DOXYCYCLINE. [Suspect]
     Active Substance: DOXYCYCLINE
     Indication: PLASMODIUM KNOWLESI INFECTION
     Dosage: UNK
     Route: 065
  3. ARTEMETHER,LUMEFANTRINE [Suspect]
     Active Substance: ARTEMETHER\LUMEFANTRINE
     Indication: PLASMODIUM KNOWLESI INFECTION
     Dosage: UNK
     Route: 048

REACTIONS (3)
  - Maternal exposure during pregnancy [Unknown]
  - Product use in unapproved indication [Unknown]
  - Foetal death [Unknown]
